FAERS Safety Report 4549859-8 (Version None)
Quarter: 2004Q4

REPORT INFORMATION
  Report Type: 
  Country: None (occurrence: None)
  Receive Date: 20041227
  Receipt Date: 20040909
  Transmission Date: 20050328
  Serious: No
  Sender: FDA-Public Use
  Company Number: 04P-163-0272802-00

PATIENT
  Age: 67 Year
  Sex: Female
  Weight: 52.6173 kg

DRUGS (10)
  1. HUMIRA [Suspect]
     Dosage: SEE IMAGE
     Route: 058
     Dates: start: 20031224, end: 20040101
  2. HUMIRA [Suspect]
     Dosage: SEE IMAGE
     Route: 058
     Dates: start: 20040101
  3. HYDROXYCHLOROQUINE PHOSPHATE [Concomitant]
  4. LEVOTHYROXINE SODIUM [Concomitant]
  5. FORTEO [Concomitant]
  6. MULTI-VITAMINS [Concomitant]
  7. ASCORBIC ACID [Concomitant]
  8. TOCOPHEROL CONCENTRATE CAP [Concomitant]
  9. CYANOCOBALAMIN [Concomitant]
  10. DOCUSATE SODIUM [Concomitant]

REACTIONS (1)
  - INJECTION SITE BURNING [None]
